FAERS Safety Report 17587587 (Version 1)
Quarter: 2020Q1

REPORT INFORMATION
  Report Type: Report from Study
  Country: US (occurrence: US)
  Receive Date: 20200326
  Receipt Date: 20200326
  Transmission Date: 20200409
  Serious: Yes (Hospitalization)
  Sender: FDA-Public Use
  Company Number: US-BRISTOL-MYERS SQUIBB COMPANY-BMS-2020-024116

PATIENT
  Age: 68 Year
  Sex: Female
  Weight: 59.4 kg

DRUGS (1)
  1. NIVOLUMAB [Suspect]
     Active Substance: NIVOLUMAB
     Indication: LUNG ADENOCARCINOMA
     Dosage: 480 MILLIGRAM
     Route: 065
     Dates: start: 20190701, end: 20200212

REACTIONS (2)
  - Coronavirus test positive [Unknown]
  - Bronchitis viral [Unknown]

NARRATIVE: CASE EVENT DATE: 20200306
